FAERS Safety Report 9110904 (Version 1)
Quarter: 2013Q1

REPORT INFORMATION
  Report Type: Spontaneous
  Country: US (occurrence: US)
  Receive Date: 20130219
  Receipt Date: 20130219
  Transmission Date: 20140127
  Serious: No
  Sender: FDA-Public Use
  Company Number: US-BRISTOL-MYERS SQUIBB COMPANY-16599383

PATIENT
  Age: 56 Year
  Sex: Female
  Weight: 76 kg

DRUGS (5)
  1. ORENCIA FOR INJ [Suspect]
     Indication: RHEUMATOID ARTHRITIS
     Dosage: LASTT INJ ON 21MAY2012
     Route: 058
  2. HYDROCODONE [Concomitant]
  3. XANAX [Concomitant]
  4. FOLIC ACID [Concomitant]
  5. MOBIC [Concomitant]

REACTIONS (8)
  - Fatigue [Unknown]
  - Upper extremity mass [Recovered/Resolved]
  - Arthritis [Unknown]
  - Anaemia [Recovering/Resolving]
  - Groin pain [Unknown]
  - Swelling face [Unknown]
  - Back pain [Unknown]
  - Drug ineffective [Unknown]
